FAERS Safety Report 18846155 (Version 1)
Quarter: 2021Q1

REPORT INFORMATION
  Report Type: Report from Study
  Country: US (occurrence: US)
  Receive Date: 20210203
  Receipt Date: 20210203
  Transmission Date: 20210419
  Serious: No
  Sender: FDA-Public Use
  Company Number: US-EXELIXIS-CABO-20030524

PATIENT
  Sex: Female

DRUGS (3)
  1. CABOMETYX [Suspect]
     Active Substance: CABOZANTINIB S-MALATE
     Indication: METASTASES TO THYROID
  2. CABOMETYX [Suspect]
     Active Substance: CABOZANTINIB S-MALATE
     Indication: MALIGNANT MELANOMA
     Dosage: 40 MG, QD
     Dates: start: 20200520, end: 20200614
  3. CABOMETYX [Suspect]
     Active Substance: CABOZANTINIB S-MALATE
     Indication: OCULAR NEOPLASM
     Dosage: 40 MG, QD(PM)
     Dates: start: 20200713

REACTIONS (9)
  - Skin exfoliation [Recovered/Resolved]
  - Off label use [Unknown]
  - Blood pressure fluctuation [Recovered/Resolved]
  - Pain [Unknown]
  - Oral pain [Recovered/Resolved]
  - Glossodynia [Unknown]
  - Liver disorder [Unknown]
  - Fatigue [Unknown]
  - Confusional state [Unknown]
